FAERS Safety Report 12703590 (Version 4)
Quarter: 2016Q4

REPORT INFORMATION
  Report Type: Report from Study
  Country: DE (occurrence: DE)
  Receive Date: 20160831
  Receipt Date: 20161110
  Transmission Date: 20170207
  Serious: Yes (Death, Other)
  Sender: FDA-Public Use
  Company Number: PHHY2016DE118685

PATIENT
  Sex: Male

DRUGS (2)
  1. MARCUMAR [Concomitant]
     Active Substance: PHENPROCOUMON
     Indication: PRODUCT USED FOR UNKNOWN INDICATION
     Route: 065
  2. TASIGNA [Suspect]
     Active Substance: NILOTINIB
     Indication: CHRONIC MYELOID LEUKAEMIA
     Route: 065
     Dates: start: 201003, end: 201101

REACTIONS (10)
  - Renal failure [Fatal]
  - Gastrointestinal haemorrhage [Fatal]
  - Mitral valve incompetence [Fatal]
  - Peripheral arterial occlusive disease [Fatal]
  - Respiratory arrest [Fatal]
  - Metabolic syndrome [Fatal]
  - Cardiomyopathy [Fatal]
  - Aortic valve incompetence [Fatal]
  - Cardiac failure [Fatal]
  - Coronary artery disease [Fatal]

NARRATIVE: CASE EVENT DATE: 20120215
